FAERS Safety Report 5130078-1 (Version None)
Quarter: 2006Q4

REPORT INFORMATION
  Report Type: 
  Country: None (occurrence: None)
  Receive Date: 20061013
  Receipt Date: 20060927
  Transmission Date: 20070319
  Serious: Yes (Hospitalization)
  Sender: FDA-Public Use
  Company Number: FR200608004684

PATIENT
  Age: 84 Year

DRUGS (5)
  1. FORTEO [Suspect]
     Indication: OSTEOPOROSIS
     Dosage: 20 UG, DAILY (1/D), SUBCUTANEOUS
     Route: 058
     Dates: start: 20050401
  2. FORTEO [Concomitant]
  3. CORTISONE ACETATE [Concomitant]
  4. ACETAMINOPHEN W/ PROPOXYPHENE HCL [Concomitant]
  5. LEVOTHYROXINE SODIUM [Concomitant]

REACTIONS (4)
  - DECREASED APPETITE [None]
  - DEHYDRATION [None]
  - RENAL FAILURE [None]
  - WEIGHT DECREASED [None]
